FAERS Safety Report 8302289-5 (Version None)
Quarter: 2012Q2

REPORT INFORMATION
  Report Type: 
  Country: None (occurrence: None)
  Receive Date: 20120420
  Receipt Date: 20120411
  Transmission Date: 20120825
  Serious: Yes (Hospitalization)
  Sender: FDA-Public Use
  Company Number: US-JNJFOC-20120406749

PATIENT
  Sex: Male
  Weight: 29.7 kg

DRUGS (11)
  1. HUMIRA [Concomitant]
     Dates: start: 20080319
  2. OMEPRAZOLE [Concomitant]
  3. LOPERAMIDE [Concomitant]
  4. OXYCODONE/ACETAMINOPHEN [Concomitant]
  5. MESALAMINE [Concomitant]
  6. PREDNISONE TAB [Concomitant]
  7. REMICADE [Suspect]
     Indication: INFLAMMATORY BOWEL DISEASE
     Route: 042
     Dates: start: 20050921
  8. FAMOTIDINE [Concomitant]
  9. IRON [Concomitant]
  10. AZATHIOPRINE [Concomitant]
  11. ANTIBIOTICS [Concomitant]

REACTIONS (1)
  - RESECTION OF RECTUM [None]
